FAERS Safety Report 5518155-4 (Version None)
Quarter: 2007Q4

REPORT INFORMATION
  Report Type: 
  Country: None (occurrence: None)
  Receive Date: 20071115
  Receipt Date: 20071101
  Transmission Date: 20080405
  Serious: Yes (Hospitalization, Other)
  Sender: FDA-Public Use
  Company Number: US-BAYER-200713372BWH

PATIENT
  Age: 66 Year
  Sex: Male

DRUGS (10)
  1. NEXAVAR [Suspect]
     Indication: HEPATIC NEOPLASM MALIGNANT
     Dosage: TOTAL DAILY DOSE: 800 MG  UNIT DOSE: 200 MG
     Route: 048
     Dates: start: 20070829, end: 20070912
  2. NEXAVAR [Suspect]
     Dosage: TOTAL DAILY DOSE: 800 MG  UNIT DOSE: 200 MG
     Route: 048
     Dates: start: 20071015
  3. SIMVASTATIN [Suspect]
     Indication: HYPERCHOLESTEROLAEMIA
     Route: 048
     Dates: end: 20070917
  4. METOPROLOL TARTRATE [Concomitant]
  5. FOSINOPRIL SODIUM [Concomitant]
  6. AMARYL [Concomitant]
  7. MULTI-VITAMIN [Concomitant]
  8. VITAMIN B-12 [Concomitant]
  9. MAGNESIUM SULFATE [Concomitant]
  10. POTASSIUM CHLORIDE [Concomitant]

REACTIONS (7)
  - ASCITES [None]
  - BLOOD BILIRUBIN INCREASED [None]
  - BLOOD CREATINE PHOSPHOKINASE INCREASED [None]
  - MUSCULAR WEAKNESS [None]
  - MYALGIA [None]
  - RHABDOMYOLYSIS [None]
  - TRANSAMINASES INCREASED [None]
